FAERS Safety Report 14445074 (Version 3)
Quarter: 2018Q2

REPORT INFORMATION
  Report Type: Spontaneous
  Country: US (occurrence: US)
  Receive Date: 20180126
  Receipt Date: 20180622
  Transmission Date: 20180711
  Serious: No
  Sender: FDA-Public Use
  Company Number: US-PFIZER INC-2018035836

PATIENT
  Age: 51 Year
  Sex: Male

DRUGS (1)
  1. XELJANZ [Suspect]
     Active Substance: TOFACITINIB CITRATE
     Indication: RHEUMATOID ARTHRITIS
     Dosage: 5 MG, TWICE A DAY (EVERY 12 HOURS; SWALLOW WHOLE, DO NOT CHEW)
     Route: 048
     Dates: start: 201708

REACTIONS (4)
  - Road traffic accident [Recovering/Resolving]
  - Drug dose omission [Unknown]
  - Laceration [Recovering/Resolving]
  - Contusion [Recovering/Resolving]
